FAERS Safety Report 6581279-7 (Version None)
Quarter: 2010Q1

REPORT INFORMATION
  Report Type: 
  Country: None (occurrence: None)
  Receive Date: 20100215
  Receipt Date: 20100203
  Transmission Date: 20100710
  Serious: Yes (Death, Hospitalization, Other)
  Sender: FDA-Public Use
  Company Number: CA-ABBOTT-10P-028-0624297-00

PATIENT
  Sex: Male

DRUGS (4)
  1. LUPRON DEPOT [Suspect]
     Indication: PROSTATE CANCER
     Dates: start: 20051124, end: 20091028
  2. GLUCONONORM [Concomitant]
     Indication: DRUG USE FOR UNKNOWN INDICATION
     Dosage: 1MG QD + 0.5MG BID
  3. ASAPHEN [Concomitant]
     Indication: DRUG USE FOR UNKNOWN INDICATION
  4. CARBOCAL [Concomitant]
     Indication: DRUG USE FOR UNKNOWN INDICATION

REACTIONS (7)
  - ABASIA [None]
  - BLADDER DISORDER [None]
  - DIABETES MELLITUS [None]
  - MALAISE [None]
  - PROSTATE CANCER [None]
  - RENAL DISORDER [None]
  - TACHYCARDIA [None]
